FAERS Safety Report 8829231 (Version 2)
Quarter: 2012Q4

REPORT INFORMATION
  Report Type: 
  Country: JP (occurrence: JP)
  Receive Date: 20121008
  Receipt Date: 20121017
  Transmission Date: 20130627
  Serious: Yes (Other)
  Sender: FDA-Public Use
  Company Number: PHHY2012JP086165

PATIENT
  Age: 77 Year
  Sex: Female

DRUGS (2)
  1. CARBOPLATIN SANDOZ [Suspect]
     Indication: OVARIAN CANCER STAGE IV
     Dosage: 450 mg
     Route: 042
     Dates: start: 20120426
  2. PACLITAXEL [Suspect]
     Indication: OVARIAN CANCER STAGE IV
     Dosage: 100 mg, UNK
     Route: 042
     Dates: start: 20120426

REACTIONS (7)
  - Inappropriate antidiuretic hormone secretion [Recovered/Resolved]
  - Urine osmolarity increased [Recovered/Resolved]
  - Hyponatraemia [Recovered/Resolved]
  - Headache [Recovered/Resolved]
  - Decreased appetite [Recovered/Resolved]
  - Nausea [Recovered/Resolved]
  - Disorientation [Recovered/Resolved]
